FAERS Safety Report 10181854 (Version 1)
Quarter: 2014Q2

REPORT INFORMATION
  Report Type: Spontaneous
  Country: US (occurrence: US)
  Receive Date: 20140519
  Receipt Date: 20140519
  Transmission Date: 20141212
  Serious: Yes (Other)
  Sender: FDA-Public Use
  Company Number: US-ELI_LILLY_AND_COMPANY-US201405004011

PATIENT
  Sex: 0

DRUGS (6)
  1. GEMCITABINE HYDROCHLORIDE [Suspect]
     Indication: ADENOCARCINOMA PANCREAS
     Dosage: 1000 MG/M2, OTHER
     Route: 042
  2. GEMCITABINE HYDROCHLORIDE [Suspect]
     Dosage: 600 MG/M2, OTHER
  3. SORAFENIB [Suspect]
     Indication: ADENOCARCINOMA PANCREAS
     Dosage: 400 MG, BID
     Route: 048
  4. SORAFENIB [Suspect]
     Dosage: 200 MG, QD
     Route: 048
  5. SORAFENIB [Suspect]
     Dosage: 400 MG, QD
     Route: 048
  6. SORAFENIB [Suspect]
     Dosage: 400 MG, BID
     Route: 048

REACTIONS (1)
  - Cholecystitis [Recovered/Resolved]
